FAERS Safety Report 9542672 (Version 2)
Quarter: 2013Q4

REPORT INFORMATION
  Report Type: Spontaneous
  Country: US (occurrence: US)
  Receive Date: 20130923
  Receipt Date: 20131030
  Transmission Date: 20140711
  Serious: Yes (Hospitalization)
  Sender: FDA-Public Use
  Company Number: US-PFIZER INC-2013271371

PATIENT
  Age: 78 Year
  Sex: Female
  Weight: 74.83 kg

DRUGS (4)
  1. LIPITOR [Suspect]
     Indication: MYOCARDIAL INFARCTION
     Dosage: 40 MG, DAILY
     Dates: start: 2010
  2. DILANTIN [Suspect]
     Indication: CONVULSION
     Dosage: 1500 MG, UNK
     Dates: start: 1980
  3. DILANTIN [Suspect]
     Dosage: 800 MG, UNK
  4. DILANTIN [Suspect]
     Dosage: 100 MG, 4X/DAY

REACTIONS (2)
  - Fall [Unknown]
  - Intentional drug misuse [Unknown]
